FAERS Safety Report 4795329-1 (Version None)
Quarter: 2005Q3

REPORT INFORMATION
  Report Type: 
  Country: None (occurrence: None)
  Receive Date: 20050916
  Receipt Date: 20040818
  Transmission Date: 20060218
  Serious: Yes (Other)
  Sender: FDA-Public Use
  Company Number: US-JNJFOC-20040806645

PATIENT
  Age: 61 Year
  Sex: Female

DRUGS (8)
  1. TOPAMAX [Suspect]
     Dosage: 25 MG, IN 1 DAY, ORAL
     Route: 048
     Dates: end: 20040715
  2. ESCITALOPRAM (CITALOPRAM) [Suspect]
     Indication: DEPRESSION
     Dosage: 25 MG, IN 1 DAY , ORAL; SEE IMAGE
     Route: 048
     Dates: end: 20040715
  3. ESCITALOPRAM (CITALOPRAM) [Suspect]
     Indication: DEPRESSION
     Dosage: 25 MG, IN 1 DAY , ORAL; SEE IMAGE
     Route: 048
     Dates: start: 20031101
  4. ZOLOFT [Suspect]
     Indication: DEPRESSION
     Dosage: 150 MG, IN 1 DAY, ORAL
     Route: 048
     Dates: end: 20040715
  5. VIOXX [Suspect]
     Dosage: 25 MG, IN 1 DAY
     Dates: end: 20040715
  6. ZOCOR [Concomitant]
  7. NEXIUM [Concomitant]
  8. MIRAPEX [Concomitant]

REACTIONS (1)
  - MOUTH ULCERATION [None]
